FAERS Safety Report 7954608-7 (Version None)
Quarter: 2011Q4

REPORT INFORMATION
  Report Type: 
  Country: None (occurrence: None)
  Receive Date: 20111202
  Receipt Date: 20111128
  Transmission Date: 20120403
  Serious: Yes (Hospitalization, Disabling, Other)
  Sender: FDA-Public Use
  Company Number: PHEH2010US01705

PATIENT
  Sex: Female

DRUGS (28)
  1. LASIX [Concomitant]
     Dosage: 40 MG, QD
  2. ROCALTROL [Concomitant]
     Dosage: 0.25 MG, QD
  3. PENICILLIN V POTASSIUM [Concomitant]
     Dosage: 500 MG, Q6H
  4. FISH OIL [Concomitant]
     Dosage: 1000 MG, QID
  5. PRAVASTATIN SODIUM [Concomitant]
     Dosage: 20 MG, QD
     Route: 048
  6. ACETAMINOPHEN [Concomitant]
  7. AREDIA [Suspect]
     Indication: MULTIPLE MYELOMA
     Dosage: 90 MG, QMO
     Dates: start: 20040101, end: 20051201
  8. VITAMIN D [Concomitant]
  9. COUMADIN [Concomitant]
  10. ZESTRIL [Concomitant]
  11. ATENOLOL [Concomitant]
  12. LASIX [Concomitant]
     Dosage: 20 MG, QD
  13. LEVAQUIN [Concomitant]
     Dosage: 750 MG, QD
  14. PERIDEX [Concomitant]
     Dosage: 10 ML, TID
  15. ZOMETA [Suspect]
     Indication: MULTIPLE MYELOMA
  16. HYDROCHLOROTHIAZIDE [Concomitant]
  17. COLACE [Concomitant]
  18. GLUCOPHAGE [Concomitant]
     Dosage: 500 MG, QD
  19. TOLAZAMIDE [Concomitant]
  20. CALCIUM [Concomitant]
  21. DECADRON [Concomitant]
  22. THALIDOMIDE [Concomitant]
     Indication: MULTIPLE MYELOMA
  23. DIAMICRON [Concomitant]
     Dosage: 30 MG, QD
  24. ELEQUINE [Concomitant]
     Dosage: 750 MG, QD
  25. BACTRIM [Concomitant]
  26. NORVASC [Concomitant]
  27. METOPROLOL TARTRATE [Concomitant]
  28. PRILOSEC [Concomitant]

REACTIONS (52)
  - ANHEDONIA [None]
  - DYSLIPIDAEMIA [None]
  - RENAL CANCER [None]
  - OROPHARYNGEAL PAIN [None]
  - PULMONARY EMBOLISM [None]
  - NEUROPATHY PERIPHERAL [None]
  - OSTEOLYSIS [None]
  - COUGH [None]
  - PAIN IN JAW [None]
  - TENDERNESS [None]
  - SPINAL OSTEOARTHRITIS [None]
  - DIVERTICULUM [None]
  - CUSHINGOID [None]
  - SINUSITIS [None]
  - ANXIETY [None]
  - INTERVERTEBRAL DISC PROTRUSION [None]
  - RENAL FAILURE [None]
  - HYPERPARATHYROIDISM [None]
  - DYSPNOEA [None]
  - CHEST DISCOMFORT [None]
  - HYPOKALAEMIA [None]
  - NASAL CONGESTION [None]
  - CELLULITIS [None]
  - INJURY [None]
  - NECK PAIN [None]
  - BONE PAIN [None]
  - MUSCULAR WEAKNESS [None]
  - OSTEOARTHRITIS [None]
  - TACHYCARDIA [None]
  - SWELLING [None]
  - PNEUMONIA [None]
  - INTERVERTEBRAL DISC COMPRESSION [None]
  - METABOLIC ACIDOSIS [None]
  - KYPHOSIS [None]
  - HAEMORRHOIDS [None]
  - EXPOSED BONE IN JAW [None]
  - LOOSE TOOTH [None]
  - BONE FISTULA [None]
  - PURULENT DISCHARGE [None]
  - FATIGUE [None]
  - HYPERLIPIDAEMIA [None]
  - CONJUNCTIVITIS [None]
  - BACK PAIN [None]
  - PATHOLOGICAL FRACTURE [None]
  - CHEST PAIN [None]
  - OSTEONECROSIS OF JAW [None]
  - PAIN [None]
  - DISABILITY [None]
  - ORAL DISORDER [None]
  - ANAEMIA [None]
  - PROTEINURIA [None]
  - INFECTION [None]
